FAERS Safety Report 16093742 (Version 1)
Quarter: 2019Q1

REPORT INFORMATION
  Report Type: Spontaneous
  Country: FR (occurrence: FR)
  Receive Date: 20190320
  Receipt Date: 20190320
  Transmission Date: 20190418
  Serious: Yes (Hospitalization, Other)
  Sender: FDA-Public Use
  Company Number: FR-ACCORD-114242

PATIENT
  Age: 17 Year
  Sex: Male
  Weight: 82 kg

DRUGS (11)
  1. ESCITALOPRAM [Suspect]
     Active Substance: ESCITALOPRAM OXALATE
     Route: 048
     Dates: start: 20180701, end: 20180701
  2. TRIMEBUTINE [Suspect]
     Active Substance: TRIMEBUTINE
     Route: 048
     Dates: start: 20180701, end: 20180701
  3. AZITHROMYCIN ANHYDROUS. [Suspect]
     Active Substance: AZITHROMYCIN ANHYDROUS
     Route: 048
     Dates: start: 20180701, end: 20180701
  4. AUGMENTIN [Suspect]
     Active Substance: AMOXICILLIN\CLAVULANATE POTASSIUM
     Route: 048
     Dates: start: 20180701, end: 20180701
  5. CEFPODOXIME/CEFPODOXIME PROXETIL [Suspect]
     Active Substance: CEFPODOXIME PROXETIL
     Route: 048
     Dates: start: 20180701, end: 20180701
  6. PARACETAMOL [Suspect]
     Active Substance: ACETAMINOPHEN
     Route: 048
     Dates: start: 20180701, end: 20180701
  7. INORIAL [Suspect]
     Active Substance: BILASTINE
     Dosage: STRENGTH: 20 MG
     Route: 048
     Dates: start: 20180701, end: 20180701
  8. SERESTA [Suspect]
     Active Substance: OXAZEPAM
     Dosage: STRENGTH: 10 MG
     Route: 048
     Dates: start: 20180701, end: 20180701
  9. HEPATOUM [Suspect]
     Active Substance: DIETARY SUPPLEMENT\HERBALS
     Route: 048
     Dates: start: 20180701, end: 20180701
  10. ARESTAL [Suspect]
     Active Substance: LOPERAMIDE OXIDE
     Dosage: STRENGTH: 1 MG
     Route: 048
     Dates: start: 20180701, end: 20180701
  11. PREDNISOLONE. [Suspect]
     Active Substance: PREDNISOLONE
     Route: 048
     Dates: start: 20180701, end: 20180701

REACTIONS (6)
  - Malaise [Recovered/Resolved]
  - Mydriasis [Recovered/Resolved]
  - Suicide attempt [Unknown]
  - Toxicity to various agents [Recovered/Resolved]
  - Vomiting [Recovered/Resolved]
  - Somnolence [Recovered/Resolved]

NARRATIVE: CASE EVENT DATE: 20180701
